FAERS Safety Report 22822746 (Version 3)
Quarter: 2023Q4

REPORT INFORMATION
  Report Type: Spontaneous
  Country: US (occurrence: US)
  Receive Date: 20230815
  Receipt Date: 20231005
  Transmission Date: 20240110
  Serious: No
  Sender: FDA-Public Use
  Company Number: US-BRISTOL-MYERS SQUIBB COMPANY-2023-114385

PATIENT
  Age: 75 Year
  Sex: Male
  Weight: 77.4 kg

DRUGS (3)
  1. REVLIMID [Suspect]
     Active Substance: LENALIDOMIDE
     Indication: Plasma cell myeloma
     Dosage: FREQUENCY-3WKS ON, 1 WK OFF
     Route: 048
     Dates: start: 20230811
  2. REVLIMID [Suspect]
     Active Substance: LENALIDOMIDE
  3. NINLARO [Concomitant]
     Active Substance: IXAZOMIB CITRATE
     Indication: Plasma cell myeloma
     Dosage: FREQ: DAY 1, 8, 15/28 DAY CYCLE
     Route: 048
     Dates: start: 20230811

REACTIONS (5)
  - Pruritus [Not Recovered/Not Resolved]
  - Diarrhoea [Recovering/Resolving]
  - Gastrooesophageal reflux disease [Recovering/Resolving]
  - Vomiting [Recovering/Resolving]
  - Full blood count decreased [Unknown]
